FAERS Safety Report 5574017-8 (Version None)
Quarter: 2007Q4

REPORT INFORMATION
  Report Type: 
  Country: None (occurrence: None)
  Receive Date: 20071221
  Receipt Date: 20071212
  Transmission Date: 20080405
  Serious: Yes (Hospitalization)
  Sender: FDA-Public Use
  Company Number: DSJ-2007-10459

PATIENT
  Age: 60 Year
  Sex: Male
  Weight: 56 kg

DRUGS (5)
  1. OLMESARTAN MEDOXOMIL [Suspect]
     Indication: HYPERTENSION
     Dosage: 20 MG (1 IN 1 D), PER ORAL
     Route: 048
     Dates: start: 20070601, end: 20071113
  2. NORVASC [Suspect]
  3. ACETYLSALICYLIC ACID SRT [Suspect]
  4. ADONA (CARBAZOCHROME SODIUM SULFONATE) (CARBAZOCHROME SODIUM SULFONATE [Concomitant]
  5. CARNACULIN (KALLIDINOGENASE) (KALLIDINOGENASE) [Concomitant]

REACTIONS (10)
  - ALANINE AMINOTRANSFERASE INCREASED [None]
  - ASPARTATE AMINOTRANSFERASE INCREASED [None]
  - BILIRUBIN CONJUGATED INCREASED [None]
  - BLOOD BILIRUBIN INCREASED [None]
  - DIVERTICULUM [None]
  - GASTRITIS [None]
  - HEPATIC FUNCTION ABNORMAL [None]
  - JAUNDICE [None]
  - LIVER DISORDER [None]
  - LYMPHOCYTE STIMULATION TEST POSITIVE [None]
